FAERS Safety Report 8268603-4 (Version None)
Quarter: 2012Q2

REPORT INFORMATION
  Report Type: 
  Country: None (occurrence: None)
  Receive Date: 20120409
  Receipt Date: 20120326
  Transmission Date: 20120825
  Serious: Yes (Other)
  Sender: FDA-Public Use
  Company Number: FR-SHIRE-ALL1-2012-01472

PATIENT
  Sex: Male
  Weight: 86 kg

DRUGS (4)
  1. SINEMET [Concomitant]
     Indication: PARKINSON'S DISEASE
     Dosage: 200MG/ 50MG, UNKNOWN
     Route: 048
  2. MIDODRINE HYDROCHLORIDE [Suspect]
     Indication: ORTHOSTATIC HYPOTENSION
     Dosage: 2.5 MG, UNKNOWN
     Route: 048
     Dates: start: 20110202, end: 20120303
  3. STALEVO 100 [Concomitant]
     Indication: PARKINSON'S DISEASE
     Dosage: 375 MG/ 93.75MG/ 1000 MG, UNKNOWN
     Route: 048
     Dates: start: 20110101
  4. PRAMIPEXOLE DIHYDROCHLORIDE [Concomitant]
     Indication: PARKINSON'S DISEASE
     Dosage: 1.56 MG, UNKNOWN
     Route: 048

REACTIONS (2)
  - CONDITION AGGRAVATED [None]
  - AUTONOMIC NERVOUS SYSTEM IMBALANCE [None]
